FAERS Safety Report 19893773 (Version 1)
Quarter: 2021Q3

REPORT INFORMATION
  Report Type: Spontaneous
  Country: US (occurrence: US)
  Receive Date: 20210928
  Receipt Date: 20210928
  Transmission Date: 20211014
  Serious: Yes (Other)
  Sender: FDA-Public Use
  Company Number: US-GILEAD-2021-0545617

PATIENT
  Age: 59 Year
  Sex: Female
  Weight: 78.8 kg

DRUGS (7)
  1. DEXAMETHASONE. [Concomitant]
     Active Substance: DEXAMETHASONE
     Dosage: 10 MG, IV PUSH, START DATE ^DAY OF TREATMENT^
     Route: 042
  2. FAMOTIDINE. [Concomitant]
     Active Substance: FAMOTIDINE
     Dosage: 20 MG, IV PUSH START DATE ^DAY OF TREATMENT^
     Route: 042
  3. ACETAMINOPHEN. [Concomitant]
     Active Substance: ACETAMINOPHEN
     Dosage: 650 MG, START DATE ^DAY OF TREATMENT^
  4. MAGNESIUM [Concomitant]
     Active Substance: MAGNESIUM
     Dosage: 1 L IV FLUID BAG WITH MAGNESIUM
     Route: 042
  5. TRODELVY [Suspect]
     Active Substance: SACITUZUMAB GOVITECAN-HZIY
     Indication: PRODUCT USED FOR UNKNOWN INDICATION
     Dosage: 813 MG
     Route: 042
     Dates: start: 20210610
  6. PALONOSETRON. [Concomitant]
     Active Substance: PALONOSETRON HYDROCHLORIDE
     Dosage: 0.25 MG, IV PUSH START DATE ^DAY OF TREATMENT^
     Route: 042
  7. DIPHENHYDRAMINE. [Concomitant]
     Active Substance: DIPHENHYDRAMINE
     Dosage: 25 MG, IV PUSH START DATE ^DAY OF TREATMENT^
     Route: 042

REACTIONS (1)
  - Blood glucose abnormal [Recovered/Resolved]

NARRATIVE: CASE EVENT DATE: 20210812
